FAERS Safety Report 9308353 (Version 1)
Quarter: 2013Q2

REPORT INFORMATION
  Report Type: Spontaneous
  Country: DE (occurrence: DE)
  Receive Date: 20130524
  Receipt Date: 20130524
  Transmission Date: 20140414
  Serious: Yes (Hospitalization)
  Sender: FDA-Public Use
  Company Number: DE-TEVA-405231GER

PATIENT
  Age: 45 Year
  Sex: Male

DRUGS (4)
  1. METHOTREXATE [Suspect]
     Indication: RHEUMATOID ARTHRITIS
     Route: 058
     Dates: start: 20110509
  2. ORENCIA [Suspect]
     Indication: RHEUMATOID ARTHRITIS
     Route: 042
     Dates: start: 20120723, end: 20130322
  3. PREDNISOLONE [Concomitant]
     Dates: start: 20130323
  4. CODEIN PHOSPHATE/DICLOFENAC SODIUM [Concomitant]
     Dates: start: 20130305

REACTIONS (4)
  - Bronchopneumonia [Not Recovered/Not Resolved]
  - Pancreatic cyst [Unknown]
  - Mediastinal cyst [Unknown]
  - Cardiac failure [Unknown]
